FAERS Safety Report 4747779-7 (Version None)
Quarter: 2005Q3

REPORT INFORMATION
  Report Type: 
  Country: None (occurrence: None)
  Receive Date: 20050816
  Receipt Date: 20050803
  Transmission Date: 20060218
  Serious: Yes (Hospitalization)
  Sender: FDA-Public Use
  Company Number: PHBS2005JP09463

PATIENT
  Age: 81 Year
  Sex: Male
  Weight: 50.0318 kg

DRUGS (7)
  1. VISUDYNE [Suspect]
     Indication: MACULAR DEGENERATION
     Dosage: 9 MG DAILY IV
     Route: 042
     Dates: start: 20050622, end: 20050624
  2. NOZLEN [Concomitant]
  3. METHAPHYLLIN [Concomitant]
  4. ULCERLMIN [Concomitant]
  5. SERENAL [Concomitant]
  6. TAGAMET [Concomitant]
  7. PRIMPERAN INJ [Concomitant]

REACTIONS (1)
  - INTESTINAL OBSTRUCTION [None]
